FAERS Safety Report 25874633 (Version 2)
Quarter: 2025Q4

REPORT INFORMATION
  Report Type: Spontaneous
  Country: US (occurrence: US)
  Receive Date: 20251002
  Receipt Date: 20251031
  Transmission Date: 20260118
  Serious: No
  Sender: BIOMARIN
  Company Number: US-SA-2025SA288722

PATIENT
  Age: 6 Year
  Sex: Female

DRUGS (1)
  1. LARONIDASE [Suspect]
     Active Substance: LARONIDASE
     Indication: Mucopolysaccharidosis I
     Dosage: 11.6 TOTAL DOSE ADMINISTERED, QW
     Dates: start: 20190417

REACTIONS (2)
  - Urinary glycosaminoglycans increased [Not Recovered/Not Resolved]
  - Neutralising antibodies positive [Not Recovered/Not Resolved]
